FAERS Safety Report 8388337-5 (Version None)
Quarter: 2012Q2

REPORT INFORMATION
  Report Type: 
  Country: None (occurrence: None)
  Receive Date: 20120525
  Receipt Date: 20120518
  Transmission Date: 20120825
  Serious: Yes (Other)
  Sender: FDA-Public Use
  Company Number: US-US-EMD SERONO, INC.-7134162

PATIENT
  Sex: Female

DRUGS (1)
  1. REBIF [Suspect]
     Indication: MULTIPLE SCLEROSIS
     Route: 058
     Dates: start: 20110707, end: 20120501

REACTIONS (3)
  - POSTOPERATIVE WOUND COMPLICATION [None]
  - MULTIPLE SCLEROSIS RELAPSE [None]
  - HIP ARTHROPLASTY [None]
